FAERS Safety Report 23295682 (Version 1)
Quarter: 2023Q4

REPORT INFORMATION
  Report Type: Spontaneous
  Country: NL (occurrence: NL)
  Receive Date: 20231214
  Receipt Date: 20231214
  Transmission Date: 20240109
  Serious: Yes (Other)
  Sender: FDA-Public Use
  Company Number: None

PATIENT
  Age: 25 Year
  Sex: Female

DRUGS (2)
  1. IVERMECTIN [Suspect]
     Active Substance: IVERMECTIN
     Indication: Acarodermatitis
     Dosage: 5 TABLETS ONCE
     Dates: start: 20231107, end: 20231108
  2. BETNELAN [BETAMETHASONE] [Concomitant]
     Dosage: OINTMENT, 1 MG/G (MILLIGRAM PER GRAM)

REACTIONS (2)
  - Delirium febrile [Recovered/Resolved]
  - Pyrexia [Recovered/Resolved]
